FAERS Safety Report 12147480 (Version 1)
Quarter: 2016Q1

REPORT INFORMATION
  Report Type: Spontaneous
  Country: FR (occurrence: FR)
  Receive Date: 20160304
  Receipt Date: 20160304
  Transmission Date: 20160526
  Serious: Yes (Hospitalization, Other)
  Sender: FDA-Public Use
  Company Number: FR-GLAXOSMITHKLINE-FR2016GSK031091

PATIENT
  Age: 56 Year
  Sex: Female

DRUGS (9)
  1. EPOPROSTENOL. [Suspect]
     Active Substance: EPOPROSTENOL
     Indication: AORTIC VALVE DISEASE
  2. BOSENTAN [Concomitant]
     Active Substance: BOSENTAN
     Indication: AORTIC VALVE DISEASE
  3. FUROSEMIDE. [Concomitant]
     Active Substance: FUROSEMIDE
     Indication: PRODUCT USED FOR UNKNOWN INDICATION
     Dosage: UNK
  4. BOSENTAN [Concomitant]
     Active Substance: BOSENTAN
     Indication: PORTOPULMONARY HYPERTENSION
     Dosage: UNK
  5. TREPROSTINIL [Concomitant]
     Active Substance: TREPROSTINIL
     Indication: AORTIC VALVE DISEASE
  6. TREPROSTINIL [Concomitant]
     Active Substance: TREPROSTINIL
     Indication: PORTOPULMONARY HYPERTENSION
     Dosage: UNK
  7. TADALAFIL [Concomitant]
     Active Substance: TADALAFIL
     Indication: PORTOPULMONARY HYPERTENSION
     Dosage: UNK
  8. TADALAFIL [Concomitant]
     Active Substance: TADALAFIL
     Indication: AORTIC VALVE DISEASE
  9. EPOPROSTENOL. [Suspect]
     Active Substance: EPOPROSTENOL
     Indication: PORTOPULMONARY HYPERTENSION
     Dosage: UNK

REACTIONS (7)
  - Staphylococcal sepsis [Unknown]
  - Device related infection [Unknown]
  - Cardiac ablation [Unknown]
  - Drug intolerance [Unknown]
  - Cardiac failure [Unknown]
  - Endocarditis [Unknown]
  - Aortic valve incompetence [Unknown]
